FAERS Safety Report 8866487 (Version 2)
Quarter: 2012Q4

REPORT INFORMATION
  Report Type: 
  Country: US (occurrence: US)
  Receive Date: 20121025
  Receipt Date: 20121102
  Transmission Date: 20130627
  Serious: Yes (Hospitalization)
  Sender: FDA-Public Use
  Company Number: US-JNJFOC-20121009437

PATIENT
  Sex: Female
  Weight: 68.9 kg

DRUGS (17)
  1. XARELTO [Suspect]
     Indication: CEREBROVASCULAR ACCIDENT PROPHYLAXIS
     Route: 048
     Dates: start: 20120119, end: 20120727
  2. XARELTO [Suspect]
     Indication: ATRIAL FIBRILLATION
     Route: 048
     Dates: start: 20120119, end: 20120727
  3. ASPIRIN [Concomitant]
  4. METOCLOPRAMID [Concomitant]
  5. SITAGLIPTIN [Concomitant]
  6. ATORVASTATIN [Concomitant]
  7. MONTELUKAST [Concomitant]
  8. GLIMEPIRIDE [Concomitant]
  9. CALCIUM CARBONATE [Concomitant]
  10. TRAMADOL [Concomitant]
  11. HCTZ [Concomitant]
  12. LOSARTAN [Concomitant]
  13. LORATADINE [Concomitant]
  14. MAGNESIUM OXIDE [Concomitant]
  15. NTG [Concomitant]
     Route: 060
  16. OMEPRAZOLE [Concomitant]
  17. EXEMESTANE [Concomitant]

REACTIONS (5)
  - Abdominal pain [Recovering/Resolving]
  - Intra-abdominal haemorrhage [Unknown]
  - Nausea [Recovering/Resolving]
  - Haemorrhagic anaemia [Recovering/Resolving]
  - Biliary dyskinesia [Unknown]
